FAERS Safety Report 10395723 (Version 5)
Quarter: 2015Q1

REPORT INFORMATION
  Report Type: Spontaneous
  Country: CN (occurrence: CN)
  Receive Date: 20140820
  Receipt Date: 20150112
  Transmission Date: 20150720
  Serious: Yes (Death, Hospitalization, Other)
  Sender: FDA-Public Use
  Company Number: PHHY2014CN102932

PATIENT
  Age: 80 Year
  Sex: Female

DRUGS (7)
  1. FUROSEMIDE. [Concomitant]
     Active Substance: FUROSEMIDE
     Indication: OLIGURIA
     Dosage: EVERY DAY
     Route: 065
     Dates: start: 20140729
  2. FUROSEMIDE. [Concomitant]
     Active Substance: FUROSEMIDE
     Dosage: EVERY DAY
     Route: 065
     Dates: start: 20140730
  3. ZETONG [Concomitant]
     Indication: OLIGURIA
     Dosage: EVERY DAY
     Route: 065
     Dates: start: 20140804
  4. ACLASTA [Suspect]
     Active Substance: ZOLEDRONIC ACID
     Indication: OSTEOPOROSIS POSTMENOPAUSAL
     Dosage: 5 MG, ONCE A YEAR
     Route: 042
     Dates: start: 20140731
  5. FUROSEMIDE. [Concomitant]
     Active Substance: FUROSEMIDE
     Dosage: EVERY DAY
     Route: 065
     Dates: start: 20140831
  6. NORVASC [Concomitant]
     Active Substance: AMLODIPINE BESYLATE
     Indication: HYPERTENSION
     Route: 065
  7. FUROSEMIDE. [Concomitant]
     Active Substance: FUROSEMIDE
     Dosage: EVERY DAY
     Route: 065
     Dates: start: 20140804

REACTIONS (10)
  - Urine output decreased [Unknown]
  - Pneumonia [Not Recovered/Not Resolved]
  - PCO2 increased [Fatal]
  - Renal failure [Not Recovered/Not Resolved]
  - Oxygen saturation decreased [Fatal]
  - Lung infection [Fatal]
  - Chest discomfort [Fatal]
  - Blood creatinine increased [Unknown]
  - Concomitant disease aggravated [Fatal]
  - Pyrexia [Unknown]

NARRATIVE: CASE EVENT DATE: 20140803
